FAERS Safety Report 18543631 (Version 2)
Quarter: 2020Q4

REPORT INFORMATION
  Report Type: Report from Study
  Country: US (occurrence: US)
  Receive Date: 20201124
  Receipt Date: 20201224
  Transmission Date: 20210114
  Serious: No
  Sender: FDA-Public Use
  Company Number: US-TAKEDA-2020TUS047931

PATIENT
  Sex: Female
  Weight: 67.76 kg

DRUGS (25)
  1. CYMBALTA [Concomitant]
     Active Substance: DULOXETINE HYDROCHLORIDE
  2. METAMUCIL [Concomitant]
     Active Substance: PLANTAGO SEED
  3. VOLTAREN [Concomitant]
     Active Substance: DICLOFENAC SODIUM
  4. VITAMIN C [Concomitant]
     Active Substance: ASCORBIC ACID
  5. TRAZODONE [Concomitant]
     Active Substance: TRAZODONE HYDROCHLORIDE
  6. CENTRUM SILVER [ASCORBIC ACID;BETACAROTENE;BIOTIN;CALCIUM;CHROMIUM;COL [Concomitant]
  7. FOSAMAX [Concomitant]
     Active Substance: ALENDRONATE SODIUM
  8. CYCLOBENZAPRINE. [Concomitant]
     Active Substance: CYCLOBENZAPRINE
  9. BREO ELLIPTA [Concomitant]
     Active Substance: FLUTICASONE FUROATE\VILANTEROL TRIFENATATE
  10. DIPHENHYDRAMINE. [Concomitant]
     Active Substance: DIPHENHYDRAMINE
  11. TRANEXAMIC ACID. [Concomitant]
     Active Substance: TRANEXAMIC ACID
  12. ZINC. [Concomitant]
     Active Substance: ZINC
  13. HYDROXYZINE [Concomitant]
     Active Substance: HYDROXYZINE HYDROCHLORIDE
  14. CELEBREX [Concomitant]
     Active Substance: CELECOXIB
  15. PREDNISONE. [Concomitant]
     Active Substance: PREDNISONE
  16. DOCUSATE [Concomitant]
     Active Substance: DOCUSATE
  17. TUMS [CALCIUM CARBONATE;MAGNESIUM CARBONATE] [Concomitant]
  18. BIOTIN [Concomitant]
     Active Substance: BIOTIN
  19. VITAMIN D3 [Concomitant]
     Active Substance: CHOLECALCIFEROL
  20. ZYRTEC [Concomitant]
     Active Substance: CETIRIZINE HYDROCHLORIDE
  21. 643 (LANADELUMAB) [Suspect]
     Active Substance: LANADELUMAB
     Indication: IMMUNE SYSTEM DISORDER
     Dosage: 300 MILLIGRAM
     Route: 058
     Dates: start: 20201016
  22. DYMISTA [Concomitant]
     Active Substance: AZELASTINE HYDROCHLORIDE\FLUTICASONE PROPIONATE
  23. CANNABIDIOL [Concomitant]
     Active Substance: CANNABIDIOL
  24. ZOFRAN [Concomitant]
     Active Substance: ONDANSETRON HYDROCHLORIDE
  25. FAMOTIDINE. [Concomitant]
     Active Substance: FAMOTIDINE

REACTIONS (4)
  - Thermal burn [Unknown]
  - Infusion site pain [Unknown]
  - Hereditary angioedema [Unknown]
  - Illness [Unknown]
